FAERS Safety Report 26108898 (Version 1)
Quarter: 2025Q4

REPORT INFORMATION
  Report Type: Spontaneous
  Country: US (occurrence: None)
  Receive Date: 20251128
  Receipt Date: 20251128
  Transmission Date: 20260118
  Serious: Yes (Other)
  Sender: FDA-CTU
  Company Number: None

PATIENT
  Age: 54 Year
  Sex: Female

DRUGS (11)
  1. LEVOTHYROXINE [Suspect]
     Active Substance: LEVOTHYROXINE
  2. ARMOUR THYROID [Concomitant]
     Active Substance: THYROID, PORCINE
  3. LISINOPRIL [Concomitant]
     Active Substance: LISINOPRIL
  4. AMLODIPINE [Concomitant]
     Active Substance: AMLODIPINE BESYLATE
  5. GABAPENTIN [Concomitant]
     Active Substance: GABAPENTIN
  6. LATANOPROST [Concomitant]
     Active Substance: LATANOPROST
  7. GUAIFENESIN [Concomitant]
     Active Substance: GUAIFENESIN
  8. SERRAPEPTASE [Concomitant]
     Active Substance: SERRAPEPTASE
  9. NATTOKINASE [Concomitant]
     Active Substance: NATTOKINASE
  10. MAGNESIUM [Concomitant]
     Active Substance: MAGNESIUM
  11. VITAMIN D [Concomitant]
     Active Substance: VITAMIN D NOS

REACTIONS (4)
  - Product substitution issue [None]
  - Emotional disorder [None]
  - Crying [None]
  - Palpitations [None]

NARRATIVE: CASE EVENT DATE: 20121020
